FAERS Safety Report 13060084 (Version 3)
Quarter: 2019Q3

REPORT INFORMATION
  Report Type: Spontaneous
  Country: US (occurrence: US)
  Receive Date: 20161223
  Receipt Date: 20190705
  Transmission Date: 20191004
  Serious: Yes (Death, Other)
  Sender: FDA-Public Use
  Company Number: US-ELI_LILLY_AND_COMPANY-US201612006976

PATIENT
  Sex: Male

DRUGS (2)
  1. CIALIS [Suspect]
     Active Substance: TADALAFIL
     Indication: ERECTILE DYSFUNCTION
     Dosage: 5 MG, UNKNOWN
     Route: 065
     Dates: start: 20070222, end: 20131120
  2. CIALIS [Suspect]
     Active Substance: TADALAFIL
     Dosage: 10 UNK
     Route: 065
     Dates: start: 20070222, end: 20131120

REACTIONS (3)
  - Malignant melanoma [Unknown]
  - Brain neoplasm malignant [Fatal]
  - Depression [Unknown]

NARRATIVE: CASE EVENT DATE: 20130925
